FAERS Safety Report 8311111-2 (Version None)
Quarter: 2012Q2

REPORT INFORMATION
  Report Type: 
  Country: None (occurrence: None)
  Receive Date: 20120425
  Receipt Date: 20120419
  Transmission Date: 20120825
  Serious: Yes (Hospitalization, Other)
  Sender: FDA-Public Use
  Company Number: BR-ABBOTT-12P-020-0927954-00

PATIENT
  Sex: Male
  Weight: 52 kg

DRUGS (4)
  1. LEVOTHYROXINE SODIUM [Concomitant]
     Indication: THYROID DISORDER
     Dosage: IN THE MORNING
     Route: 048
  2. DEPAKOTE [Suspect]
     Dosage: IN THE MORNING / AT NIGHT
     Route: 048
  3. CLOBAZAM [Concomitant]
     Indication: CONVULSION
     Dosage: 0.5 TAB IN THE MORNING / 1 AT NIGHT
     Route: 048
  4. DEPAKOTE [Suspect]
     Indication: CONVULSION
     Dosage: IN THE MORNING
     Route: 048

REACTIONS (6)
  - CONVULSION [None]
  - SOMNOLENCE [None]
  - RHINORRHOEA [None]
  - URINE OUTPUT INCREASED [None]
  - HYPOTENSION [None]
  - VOMITING [None]
